FAERS Safety Report 10359037 (Version 3)
Quarter: 2014Q4

REPORT INFORMATION
  Report Type: Spontaneous
  Country: IT (occurrence: IT)
  Receive Date: 20140804
  Receipt Date: 20141111
  Transmission Date: 20150528
  Serious: Yes (Other)
  Sender: FDA-Public Use
  Company Number: IT-ACCORD-025108

PATIENT
  Age: 50 Year
  Sex: Female

DRUGS (4)
  1. BUSILVEX [Suspect]
     Active Substance: BUSULFAN
     Indication: STEM CELL TRANSPLANT
     Dosage: PIERRE FABRE MEDICAMENT
     Route: 042
     Dates: start: 20140612
  2. GEMCITABINE [Suspect]
     Active Substance: GEMCITABINE\GEMCITABINE HYDROCHLORIDE
     Indication: STEM CELL TRANSPLANT
     Dosage: BOLUS 115 MG AND INFUSION 2750 MG
     Route: 040
     Dates: start: 20140611
  3. ALKERAN [Suspect]
     Active Substance: MELPHALAN
     Indication: STEM CELL TRANSPLANT
     Route: 042
     Dates: start: 20140616
  4. VELCADE [Suspect]
     Active Substance: BORTEZOMIB
     Indication: STEM CELL TRANSPLANT
     Route: 058
     Dates: start: 20140611

REACTIONS (10)
  - Erythema [Recovered/Resolved]
  - Gastrointestinal inflammation [Recovered/Resolved]
  - Neurotoxicity [None]
  - Skin exfoliation [Recovered/Resolved]
  - Muscle atrophy [None]
  - Neuropathy peripheral [None]
  - Vulvovaginal rash [Recovered/Resolved]
  - Off label use [Unknown]
  - Vision blurred [None]
  - Dizziness [None]

NARRATIVE: CASE EVENT DATE: 20140617
